FAERS Safety Report 4735501-X (Version None)
Quarter: 2005Q3

REPORT INFORMATION
  Report Type: 
  Country: None (occurrence: None)
  Receive Date: 20050803
  Receipt Date: 20050706
  Transmission Date: 20060218
  Serious: Yes (Hospitalization)
  Sender: FDA-Public Use
  Company Number: USA0507102185

PATIENT
  Age: 20 Year
  Sex: Female

DRUGS (1)
  1. HUMALOG [Suspect]
     Dates: start: 20030101

REACTIONS (4)
  - DRUG EXPOSURE DURING PREGNANCY [None]
  - INCORRECT DOSE ADMINISTERED [None]
  - PHARMACEUTICAL PRODUCT COMPLAINT [None]
  - PREGNANCY [None]
